FAERS Safety Report 9205406 (Version 3)
Quarter: 2013Q2

REPORT INFORMATION
  Report Type: Spontaneous
  Country: FR (occurrence: FR)
  Receive Date: 20130402
  Receipt Date: 20130501
  Transmission Date: 20140414
  Serious: Yes (Other)
  Sender: FDA-Public Use
  Company Number: FR-AMGEN-FRASP2013022048

PATIENT
  Age: 63 Year
  Sex: Female

DRUGS (6)
  1. NEULASTA [Suspect]
     Indication: PRODUCT USED FOR UNKNOWN INDICATION
     Dosage: UNK
     Dates: start: 20130307
  2. LEUCOVORIN                         /00566702/ [Concomitant]
     Indication: PANCREATIC CARCINOMA METASTATIC
     Dosage: UNK
  3. FLUOROURACIL [Concomitant]
     Indication: PANCREATIC CARCINOMA METASTATIC
     Dosage: UNK
  4. IRINOTECAN HYDROCHLORIDE [Concomitant]
     Indication: PANCREATIC CARCINOMA METASTATIC
     Dosage: UNK
  5. OXALIPLATIN [Concomitant]
     Indication: PANCREATIC CARCINOMA METASTATIC
     Dosage: UNK
  6. FRAGMINE [Concomitant]
     Indication: PROPHYLAXIS
     Dosage: 5000 UNK, QD
     Route: 058
     Dates: start: 201301

REACTIONS (2)
  - Loss of consciousness [Recovered/Resolved]
  - Malaise [Recovered/Resolved]
